FAERS Safety Report 6158781-5 (Version None)
Quarter: 2009Q2

REPORT INFORMATION
  Report Type: 
  Country: None (occurrence: None)
  Receive Date: 20090417
  Receipt Date: 20090415
  Transmission Date: 20091009
  Serious: Yes (Other)
  Sender: FDA-Public Use
  Company Number: D0061224A

PATIENT
  Sex: Female

DRUGS (8)
  1. ARIXTRA [Suspect]
     Route: 065
     Dates: start: 20090223, end: 20090310
  2. MARCUMAR [Concomitant]
     Route: 065
  3. HEPARIN [Concomitant]
     Route: 065
  4. OMEPRAZOL [Concomitant]
     Indication: GASTRIC ULCER
     Route: 065
  5. DELIX 2.5 [Concomitant]
     Indication: HYPERTENSION
     Route: 065
  6. AMIODARONE HCL [Concomitant]
     Route: 065
  7. ACTRAPHANE [Concomitant]
     Route: 065
  8. COUMADIN [Concomitant]
     Route: 065

REACTIONS (2)
  - BLISTER [None]
  - OFF LABEL USE [None]
